FAERS Safety Report 4780635-7 (Version None)
Quarter: 2005Q3

REPORT INFORMATION
  Report Type: 
  Country: None (occurrence: None)
  Receive Date: 20050926
  Receipt Date: 20050913
  Transmission Date: 20060218
  Serious: Yes (Hospitalization)
  Sender: FDA-Public Use
  Company Number: 217405

PATIENT
  Age: 59 Year
  Sex: Male
  Weight: 82.5 kg

DRUGS (9)
  1. RITUXIMAB OR PLACEBO (RITUXIMAB OR PLACEBO) CONC FOR SOLUTION FOR INFU [Suspect]
     Indication: MULTIPLE SCLEROSIS
     Dosage: SEE IMAGE
     Route: 042
     Dates: start: 20041228, end: 20050110
  2. RITUXIMAB OR PLACEBO (RITUXIMAB OR PLACEBO) CONC FOR SOLUTION FOR INFU [Suspect]
     Indication: MULTIPLE SCLEROSIS
     Dosage: SEE IMAGE
     Route: 042
     Dates: start: 20040713, end: 20050627
  3. RITUXIMAB OR PLACEBO (RITUXIMAB OR PLACEBO) CONC FOR SOLUTION FOR INFU [Suspect]
     Indication: MULTIPLE SCLEROSIS
     Dosage: SEE IMAGE
     Route: 042
     Dates: start: 20050613, end: 20050627
  4. RITUXIMAB OR PLACEBO (RITUXIMAB OR PLACEBO) CONC FOR SOLUTION FOR INFU [Suspect]
  5. VITAMIN C (ASCORBIC ACID) [Concomitant]
  6. VITAMIN E [Concomitant]
  7. FOSAMAX [Concomitant]
  8. RITUXIMAB OR PLACEBO (RITUXIMAB OR PLACEBO) CONC FOR SOLUTION FOR INFU [Concomitant]
  9. RITUXIMAB OR PLACEBO (RITUXIMAB OR PLACEBO) CONC FOR SOLUTION FOR INFU [Suspect]

REACTIONS (9)
  - ABASIA [None]
  - ANAEMIA [None]
  - ASPARTATE AMINOTRANSFERASE INCREASED [None]
  - DEPRESSED LEVEL OF CONSCIOUSNESS [None]
  - MENINGITIS [None]
  - PELVIC PAIN [None]
  - POLLAKIURIA [None]
  - PROSTATITIS [None]
  - VISION BLURRED [None]
